FAERS Safety Report 16339099 (Version 4)
Quarter: 2019Q4

REPORT INFORMATION
  Report Type: Spontaneous
  Country: US (occurrence: US)
  Receive Date: 20190521
  Receipt Date: 20191226
  Transmission Date: 20200122
  Serious: Yes (Hospitalization, Other)
  Sender: FDA-Public Use
  Company Number: US-PFIZER INC-2019211668

PATIENT
  Age: 56 Year
  Sex: Female
  Weight: 58.6 kg

DRUGS (11)
  1. IBUPROFEN. [Suspect]
     Active Substance: IBUPROFEN
     Indication: FOOT DEFORMITY
     Dosage: UNK, EVERY 3 HOURS A DAY
  2. ALEVE [Suspect]
     Active Substance: NAPROXEN SODIUM
     Indication: PAIN
  3. ALEVE [Suspect]
     Active Substance: NAPROXEN SODIUM
     Indication: HEADACHE
  4. NAPROXEN. [Suspect]
     Active Substance: NAPROXEN
     Indication: ARTHROPATHY
  5. ALEVE [Suspect]
     Active Substance: NAPROXEN SODIUM
     Indication: MYALGIA
     Dosage: UNK
  6. TYLENOL [Suspect]
     Active Substance: ACETAMINOPHEN
     Dosage: UNK
     Dates: end: 20190418
  7. ASPIRIN [ACETYLSALICYLIC ACID] [Suspect]
     Active Substance: ASPIRIN
     Indication: PAIN
  8. ALEVE [Suspect]
     Active Substance: NAPROXEN SODIUM
     Indication: BACK PAIN
  9. NAPROXEN. [Suspect]
     Active Substance: NAPROXEN
     Indication: MYALGIA
     Dosage: 3 HOURS
  10. NAPROXEN. [Suspect]
     Active Substance: NAPROXEN
     Indication: PAIN
  11. ASPIRIN [ACETYLSALICYLIC ACID] [Suspect]
     Active Substance: ASPIRIN
     Indication: MYALGIA
     Dosage: UNK

REACTIONS (3)
  - Gastrointestinal haemorrhage [Unknown]
  - Gastric ulcer perforation [Recovered/Resolved]
  - Dyspepsia [Recovered/Resolved]

NARRATIVE: CASE EVENT DATE: 20081020
